FAERS Safety Report 20599616 (Version 1)
Quarter: 2022Q1

REPORT INFORMATION
  Report Type: Spontaneous
  Country: US (occurrence: US)
  Receive Date: 20220316
  Receipt Date: 20220316
  Transmission Date: 20220424
  Serious: Yes (Other)
  Sender: FDA-Public Use
  Company Number: US-BEH-2022143194

PATIENT
  Sex: Female

DRUGS (2)
  1. PRIVIGEN [Suspect]
     Active Substance: HUMAN IMMUNOGLOBULIN G
     Indication: Immunodeficiency common variable
     Dosage: 25 MILLIGRAM, QMT
     Route: 042
     Dates: start: 202202
  2. JAKAFI [Concomitant]
     Active Substance: RUXOLITINIB
     Dosage: UNK, BID
     Route: 048

REACTIONS (3)
  - Leukaemia [Unknown]
  - Dyspnoea [Unknown]
  - Peripheral swelling [Unknown]
